FAERS Safety Report 14680207 (Version 7)
Quarter: 2021Q3

REPORT INFORMATION
  Report Type: Spontaneous
  Country: US (occurrence: US)
  Receive Date: 20180326
  Receipt Date: 20210929
  Transmission Date: 20211014
  Serious: Yes (Other)
  Sender: FDA-Public Use
  Company Number: US-PFIZER INC-2017114344

PATIENT
  Age: 50 Year
  Sex: Female
  Weight: 83.91 kg

DRUGS (6)
  1. WARFARIN [Concomitant]
     Active Substance: WARFARIN
     Indication: CEREBROVASCULAR ACCIDENT
     Dosage: 7.5 MG, 1X/DAY
  2. GENOTROPIN [Suspect]
     Active Substance: SOMATROPIN
     Indication: ADDISON^S DISEASE
     Dosage: 4 MG, DAILY
     Dates: start: 2016
  3. GENOTROPIN [Suspect]
     Active Substance: SOMATROPIN
     Indication: HYPOPITUITARISM
     Dosage: 5 MG, UNK
     Dates: start: 201507
  4. GENOTROPIN [Suspect]
     Active Substance: SOMATROPIN
     Indication: MUSCLE ATROPHY
     Dosage: 0.4 MG, 1X/DAY (SHOT IN ROTATED BETWEEN LEG, HIP, STOMACH)
  5. GENOTROPIN [Suspect]
     Active Substance: SOMATROPIN
     Indication: BONE DENSITY DECREASED
     Dosage: 0.4 MG, 1X/DAY (SHOT IN ROTATED BETWEEN LEG, HIP, STOMACH)
  6. GENOTROPIN [Suspect]
     Active Substance: SOMATROPIN
     Indication: HORMONE LEVEL ABNORMAL
     Dosage: UNK
     Dates: end: 201802

REACTIONS (18)
  - Lupus-like syndrome [Unknown]
  - Atelectasis [Not Recovered/Not Resolved]
  - Mixed connective tissue disease [Not Recovered/Not Resolved]
  - Back pain [Recovering/Resolving]
  - Dysphonia [Unknown]
  - Muscle swelling [Unknown]
  - Transient ischaemic attack [Unknown]
  - Hypotension [Unknown]
  - Joint swelling [Unknown]
  - Bronchitis [Recovering/Resolving]
  - Wrong technique in device usage process [Unknown]
  - Blood viscosity increased [Unknown]
  - Haematuria [Unknown]
  - Fibromyalgia [Not Recovered/Not Resolved]
  - Feeling abnormal [Unknown]
  - Device information output issue [Unknown]
  - Loss of consciousness [Unknown]
  - Infection [Unknown]

NARRATIVE: CASE EVENT DATE: 2017
